FAERS Safety Report 9353651 (Version 1)
Quarter: 2013Q2

REPORT INFORMATION
  Report Type: Spontaneous
  Country: US (occurrence: None)
  Receive Date: 20130612
  Receipt Date: 20130612
  Transmission Date: 20140414
  Serious: No
  Sender: FDA-Public Use
  Company Number: FK201301920

PATIENT
  Age: 41 Year
  Sex: Male
  Weight: 85.64 kg

DRUGS (15)
  1. DIPRIVAN [Suspect]
     Indication: SEDATION
     Dates: start: 20130529, end: 20130531
  2. PREVACID (LANSOPRAZOLE) [Concomitant]
  3. MILK OF MAGNESIA [Concomitant]
  4. DULCOLAX [Concomitant]
  5. CALCIUM CARBONATE [Concomitant]
  6. FENTANYL [Concomitant]
  7. PRECEDEX [Concomitant]
  8. ATIVAN (LORAZEPAM) [Concomitant]
  9. MORPHINE [Concomitant]
  10. ZOFRAN [Concomitant]
  11. PERIDEX [Concomitant]
  12. COLACE [Concomitant]
  13. ACETAMINOPHEN [Concomitant]
  14. BENADRYL [Concomitant]
  15. CALCIUM GLUCONATE [Concomitant]

REACTIONS (5)
  - Breast discharge [None]
  - Secretion discharge [None]
  - Hypotension [None]
  - Pyrexia [None]
  - Excoriation [None]
